FAERS Safety Report 15879596 (Version 1)
Quarter: 2019Q1

REPORT INFORMATION
  Report Type: Spontaneous
  Country: CN (occurrence: CN)
  Receive Date: 20190128
  Receipt Date: 20190128
  Transmission Date: 20190417
  Serious: Yes (Death, Other)
  Sender: FDA-Public Use
  Company Number: CN-CORDEN PHARMA LATINA S.P.A.-CN-2019COR000029

PATIENT
  Age: 3 Year
  Sex: Male

DRUGS (42)
  1. CYCLOPHOSPHAMIDE. [Suspect]
     Active Substance: CYCLOPHOSPHAMIDE
     Dosage: 0.5 G/M2 DAY 1 AND DAY 2, M3
     Route: 042
  2. METHOTREXATE. [Suspect]
     Active Substance: METHOTREXATE
     Dosage: 8 G/M2 FROM DAY 15-18, CYVE
     Route: 042
  3. PREDNISONE. [Suspect]
     Active Substance: PREDNISONE
     Dosage: 60 MG/M2 IN 2 SEPARATE FROM DAY 1-5,M1 AND MAINTENANCE
     Route: 048
  4. PREDNISONE. [Suspect]
     Active Substance: PREDNISONE
     Dosage: 60 MG/M2 IN 2 SEPARATE DOSES DAY 1-5, M3
     Route: 048
  5. CYTARABINE. [Suspect]
     Active Substance: CYTARABINE
     Indication: BURKITT^S LYMPHOMA
     Dosage: 30MG ON DAY 1, 3 AND 5, PRE-TREATMENT
     Route: 037
  6. CYTARABINE. [Suspect]
     Active Substance: CYTARABINE
     Dosage: 30MG DAY 2,4 AND 6, M1 AND MAINTENANCE
     Route: 037
  7. CYTARABINE. [Suspect]
     Active Substance: CYTARABINE
     Dosage: 100 MG/M2 IN 2 SEPARATE DOSES EVERY 12 HRS, DAY 1-5, M3
     Route: 042
  8. DEXAMETHASONE. [Suspect]
     Active Substance: DEXAMETHASONE
     Dosage: 4 MG ON DAY 1, M2
     Route: 037
  9. METHOTREXATE. [Suspect]
     Active Substance: METHOTREXATE
     Indication: BURKITT^S LYMPHOMA
     Dosage: 15MG ON DAY 1,3 AND 5, PRETREATMENT
     Route: 037
  10. METHOTREXATE. [Suspect]
     Active Substance: METHOTREXATE
     Dosage: 15 MG INJECTIONS ON DAY 2,4 AND 6, M1 AND MAINTENANCE
     Route: 037
  11. METHOTREXATE. [Suspect]
     Active Substance: METHOTREXATE
     Dosage: 15MG, 24 HOURS AFTER LARGE DOSE, CYVE
     Route: 037
  12. CYCLOPHOSPHAMIDE. [Suspect]
     Active Substance: CYCLOPHOSPHAMIDE
     Dosage: 0.5 G/M2 FROM DAY 2 TO DAY 4, M1 AND MAINTENANCE
     Route: 042
  13. METHOTREXATE. [Suspect]
     Active Substance: METHOTREXATE
     Dosage: 8 G/M2 FROM DAY 15 -18, CYVE
     Route: 042
  14. LEVOMEFOLIC ACID [Concomitant]
     Active Substance: LEVOMEFOLIC ACID
     Indication: BURKITT^S LYMPHOMA
     Dosage: UNK, M1 AND MAINTENANCE
     Route: 065
  15. ETOPOSIDE. [Suspect]
     Active Substance: ETOPOSIDE
     Dosage: 150 MG/M2 FROM DAY 1 TO DAY 3, M2 AND M4
     Route: 042
  16. CYTARABINE. [Suspect]
     Active Substance: CYTARABINE
     Dosage: 30MG ON DAY 1, M2
     Route: 037
  17. CYTARABINE. [Suspect]
     Active Substance: CYTARABINE
     Dosage: 50 MG/M2 BID DAY 1 AND 5, CONSOLIDATION PHASE
     Route: 042
  18. CYTARABINE. [Suspect]
     Active Substance: CYTARABINE
     Dosage: 3 G/M2 DAY 2 AND 5, CONSOLIDATION PHASE
     Route: 042
  19. CYTARABINE. [Suspect]
     Active Substance: CYTARABINE
     Dosage: 50 MG/M2 ON DAY1,5, CONSOLIDATION PHASE
     Route: 042
  20. CYTARABINE. [Suspect]
     Active Substance: CYTARABINE
     Dosage: 3 G/M2 DAY 2 AND 5, CYVE2
     Route: 042
  21. DAUNORUBICIN [Suspect]
     Active Substance: DAUNORUBICIN
     Indication: BURKITT^S LYMPHOMA
     Dosage: 30 MG/M2 DAY 2 AND 3, M1 AND MAINTENANCE
     Route: 042
  22. DEXAMETHASONE. [Suspect]
     Active Substance: DEXAMETHASONE
     Dosage: 4 MG, 24 HOURS AFTER LARGE DOSE OF METHOTREXATE, CYEVE1
     Route: 037
  23. RITUXIMAB. [Suspect]
     Active Substance: RITUXIMAB
     Dosage: 375 MG/M2 ON THE FIRST DAY AFTER CYVE2
     Route: 042
  24. RITUXIMAB. [Suspect]
     Active Substance: RITUXIMAB
     Dosage: 375 MG/M2 A DAY BEFORE CHEMOTHERAPY, MAINTENANCE
     Route: 042
  25. DOXORUBICIN [Suspect]
     Active Substance: DOXORUBICIN
     Dosage: 30 MG/M2 ON DAY 1 AND 2, M3
     Route: 042
  26. ETOPOSIDE. [Suspect]
     Active Substance: ETOPOSIDE
     Indication: BURKITT^S LYMPHOMA
     Dosage: 100 MG/M2 DURING DAY 2 AND 5, CONSOLATION
     Route: 042
  27. CYCLOPHOSPHAMIDE. [Suspect]
     Active Substance: CYCLOPHOSPHAMIDE
     Dosage: 1 G/M2 IN 2 SEPARATE DOSES, EVERY 12 HOURS ON DAY 1,2, MAINTENANCE
     Route: 042
  28. DEXAMETHASONE. [Suspect]
     Active Substance: DEXAMETHASONE
     Dosage: 4 MG ON DAY 2,4 AND 6, M1 AND MAINTENANCE
     Route: 037
  29. METHOTREXATE. [Suspect]
     Active Substance: METHOTREXATE
     Dosage: 5 G/M2 ON DAY 1, M1 AND MAINTENANCE
     Route: 042
  30. VINCRISTINE                        /00078802/ [Suspect]
     Active Substance: VINCRISTINE
     Indication: BURKITT^S LYMPHOMA
     Dosage: 2 MG/M2 ON DAY 1, PRETREATMENT
     Route: 042
  31. VINCRISTINE                        /00078802/ [Suspect]
     Active Substance: VINCRISTINE
     Dosage: 2 MG/M2 ON DAY 1, M3
     Route: 042
  32. DOXORUBICIN [Suspect]
     Active Substance: DOXORUBICIN
     Indication: BURKITT^S LYMPHOMA
     Dosage: 60 MG/M2 IN 2 SEPARATE DOSES ON DAY 2 AND 3, MAINTENANCE
     Route: 042
  33. CYCLOPHOSPHAMIDE. [Suspect]
     Active Substance: CYCLOPHOSPHAMIDE
     Dosage: 1 G/M2 IN 2 SEPARATE DOSES EVERY 12 HOURS, DAY 2 -4, M2
     Route: 042
  34. METHOTREXATE. [Suspect]
     Active Substance: METHOTREXATE
     Dosage: 8 G/M2 DAY 2 , M2
     Route: 042
  35. RITUXIMAB. [Suspect]
     Active Substance: RITUXIMAB
     Indication: BURKITT^S LYMPHOMA
     Dosage: 375 MG/M2 DAY PRIOR TO AND DAY OF CHEMOTHERAPY, M2
     Route: 042
  36. RITUXIMAB. [Suspect]
     Active Substance: RITUXIMAB
     Dosage: 375 MG/M2 ON THE DAY 1,2, CYVE1
     Route: 042
  37. VINCRISTINE                        /00078802/ [Suspect]
     Active Substance: VINCRISTINE
     Dosage: 2 MG/M2 ON DAY 1, M1 AND MAINTENANCE
     Route: 042
  38. CYCLOPHOSPHAMIDE. [Suspect]
     Active Substance: CYCLOPHOSPHAMIDE
     Indication: BURKITT^S LYMPHOMA
     Dosage: 0.3 G/M2 ON DAY 1, PRE-TREATMENT
     Route: 042
  39. CYTARABINE. [Suspect]
     Active Substance: CYTARABINE
     Dosage: 30MG, 24 HOURS AFTER THE LARGE DOSE OF METHOTREXATE
     Route: 037
  40. DEXAMETHASONE. [Suspect]
     Active Substance: DEXAMETHASONE
     Indication: BURKITT^S LYMPHOMA
     Dosage: 4MG ON DAY 1, 3 AND  5, PRETREATMENT
     Route: 037
  41. METHOTREXATE. [Suspect]
     Active Substance: METHOTREXATE
     Dosage: 15MG ON DAY 1, M2
     Route: 037
  42. PREDNISONE. [Suspect]
     Active Substance: PREDNISONE
     Indication: BURKITT^S LYMPHOMA
     Dosage: 60 MG/M2 IN 2 SEPARATE DOSES, DAY 1-7, PRETREATMENT
     Route: 048

REACTIONS (1)
  - Tumour lysis syndrome [Fatal]
